FAERS Safety Report 9227236 (Version 3)
Quarter: 2013Q2

REPORT INFORMATION
  Report Type: Spontaneous
  Country: US (occurrence: US)
  Receive Date: 20130412
  Receipt Date: 20130522
  Transmission Date: 20140414
  Serious: Yes (Hospitalization)
  Sender: FDA-Public Use
  Company Number: US-ELI_LILLY_AND_COMPANY-US201304002275

PATIENT
  Age: 85 Year
  Sex: Female
  Weight: 64.4 kg

DRUGS (12)
  1. FORTEO [Suspect]
     Indication: SENILE OSTEOPOROSIS
     Dosage: UNK, QD
     Route: 058
     Dates: start: 201104
  2. PLAVIX [Concomitant]
     Dosage: 75 MG, UNK
  3. DIOVAN [Concomitant]
     Dosage: 160 MG, QD
  4. NORVASC [Concomitant]
     Dosage: 5 MG, QD
  5. PRAVACHOL [Concomitant]
     Dosage: 40 MG, QD
  6. MAXZIDE [Concomitant]
     Dosage: UNK, QD
  7. PROTONIX [Concomitant]
     Dosage: 40 MG, QD
  8. REMERON [Concomitant]
     Dosage: 15 MG, QD
  9. LORAZEPAM [Concomitant]
     Dosage: 0.5 MG, UNK
  10. CALCIUM [Concomitant]
     Indication: SUPPLEMENTATION THERAPY
  11. VIT D [Concomitant]
     Indication: SUPPLEMENTATION THERAPY
  12. OMEGA 3-6-9 [Concomitant]
     Indication: SUPPLEMENTATION THERAPY

REACTIONS (1)
  - Cerebrovascular accident [Recovered/Resolved]
